FAERS Safety Report 7986340-8 (Version None)
Quarter: 2011Q4

REPORT INFORMATION
  Report Type: 
  Country: None (occurrence: None)
  Receive Date: 20111216
  Receipt Date: 20110712
  Transmission Date: 20120403
  Serious: No
  Sender: FDA-Public Use
  Company Number: US-BRISTOL-MYERS SQUIBB COMPANY-15896251

PATIENT
  Age: 47 Year
  Sex: Female

DRUGS (4)
  1. CELEXA [Concomitant]
  2. ABILIFY [Suspect]
     Dosage: FOR ALMOST 2 MONTHS
  3. TRAZODONE HCL [Concomitant]
  4. KLONOPIN [Concomitant]

REACTIONS (2)
  - HYPOAESTHESIA [None]
  - MUSCULOSKELETAL STIFFNESS [None]
